FAERS Safety Report 6268823-4 (Version None)
Quarter: 2009Q3

REPORT INFORMATION
  Report Type: 
  Country: None (occurrence: None)
  Receive Date: 20090710
  Receipt Date: 20090710
  Transmission Date: 20100115
  Serious: No
  Sender: FDA-Public Use
  Company Number: None

PATIENT
  Age: 64 Year
  Sex: Male
  Weight: 88.4514 kg

DRUGS (1)
  1. FENOFIBRATE [Suspect]
     Dosage: 160MG DAILY PO
     Route: 048
     Dates: start: 20090609, end: 20090708

REACTIONS (5)
  - BACK PAIN [None]
  - DIARRHOEA [None]
  - FATIGUE [None]
  - MUSCLE TIGHTNESS [None]
  - MYALGIA [None]
